FAERS Safety Report 7652314-X (Version None)
Quarter: 2011Q3

REPORT INFORMATION
  Report Type: 
  Country: None (occurrence: None)
  Receive Date: 20110803
  Receipt Date: 20110722
  Transmission Date: 20111222
  Serious: Yes (Other)
  Sender: FDA-Public Use
  Company Number: JP-PFIZER INC-2011174883

PATIENT
  Age: 79 Year
  Sex: Female

DRUGS (2)
  1. CELECOXIB [Suspect]
     Indication: OSTEOARTHRITIS
     Dosage: 100 MG, 2X/DAY
     Dates: start: 20100709, end: 20110402
  2. ARTZ [Concomitant]
     Dosage: UNK
     Dates: start: 20101019

REACTIONS (1)
  - SPINAL COMPRESSION FRACTURE [None]
